FAERS Safety Report 7305158-2 (Version None)
Quarter: 2011Q1

REPORT INFORMATION
  Report Type: 
  Country: None (occurrence: None)
  Receive Date: 20110222
  Receipt Date: 20110215
  Transmission Date: 20110831
  Serious: Yes (Hospitalization)
  Sender: FDA-Public Use
  Company Number: US-PFIZER INC-US-WYE-H17916410

PATIENT
  Sex: Female

DRUGS (1)
  1. RAPAMUNE [Suspect]
     Dosage: 1 MG, 1X/DAY
     Route: 048

REACTIONS (2)
  - HEART VALVE REPLACEMENT [None]
  - IMPAIRED HEALING [None]
